FAERS Safety Report 24075442 (Version 3)
Quarter: 2024Q3

REPORT INFORMATION
  Report Type: Report from Study
  Country: CL (occurrence: CL)
  Receive Date: 20240710
  Receipt Date: 20240723
  Transmission Date: 20241016
  Serious: Yes (Other)
  Sender: JOHNSON AND JOHNSON
  Company Number: CL-JNJFOC-20240422846

PATIENT
  Age: 47 Year
  Sex: Female

DRUGS (1)
  1. SIMPONI [Suspect]
     Active Substance: GOLIMUMAB
     Indication: Psoriatic arthropathy
     Dosage: LAST ADMINISTERED ADHERENCE ON 25-MAR-2024, 27-MAY-2024?50.00 MG / 0.50 ML
     Route: 058
     Dates: start: 20220909

REACTIONS (5)
  - Psoriatic arthropathy [Unknown]
  - Amnesia [Unknown]
  - Drug ineffective [Unknown]
  - Device leakage [Unknown]
  - Needle issue [Unknown]

NARRATIVE: CASE EVENT DATE: 20240201
